FAERS Safety Report 8251902-X (Version None)
Quarter: 2012Q2

REPORT INFORMATION
  Report Type: 
  Country: None (occurrence: None)
  Receive Date: 20120402
  Receipt Date: 20120320
  Transmission Date: 20120825
  Serious: Yes (Other)
  Sender: FDA-Public Use
  Company Number: US-MYLANLABS-2012S1006149

PATIENT
  Age: 11 Year
  Sex: Male

DRUGS (4)
  1. ETOPOSIDE [Suspect]
     Indication: HODGKIN'S DISEASE
     Dosage: 800 MG/M2 X 3 DAYS
     Route: 065
  2. METHYLPREDNISOLONE [Suspect]
     Indication: HODGKIN'S DISEASE
     Dosage: 0.25 MG/KG/DAY
     Route: 065
  3. CYCLOPHOSPHAMIDE [Suspect]
     Indication: HODGKIN'S DISEASE
     Dosage: 1500 MG/M2 X 4 DAYS
     Route: 065
  4. CARMUSTINE [Suspect]
     Indication: HODGKIN'S DISEASE
     Dosage: 100 MG/M2 X 3 DAYS
     Route: 065

REACTIONS (1)
  - LYMPHOPROLIFERATIVE DISORDER [None]
